FAERS Safety Report 5385796-7 (Version None)
Quarter: 2007Q3

REPORT INFORMATION
  Report Type: 
  Country: None (occurrence: None)
  Receive Date: 20070710
  Receipt Date: 20061002
  Transmission Date: 20080115
  Serious: Yes (Other)
  Sender: FDA-Public Use
  Company Number: US-2006-028252

PATIENT
  Age: 28 Year
  Sex: Female

DRUGS (3)
  1. YASMIN [Suspect]
     Indication: ORAL CONTRACEPTION
     Dosage: 1 TAB(S), 1X/DAY, ORAL
     Route: 048
  2. ISOTRETINOIN [Suspect]
     Dosage: 40 MG, EVERY 2D, ORAL; 80 MG, EVERY 2D, ORAL
     Route: 048
     Dates: start: 20060601, end: 20060810
  3. ISOTRETINOIN [Suspect]
     Dosage: 40 MG, EVERY 2D, ORAL; 80 MG, EVERY 2D, ORAL
     Route: 048
     Dates: start: 20060601, end: 20060810

REACTIONS (4)
  - BACK PAIN [None]
  - EPISTAXIS [None]
  - MUSCLE SPASMS [None]
  - PULMONARY EMBOLISM [None]
